FAERS Safety Report 4514604-9 (Version None)
Quarter: 2004Q3

REPORT INFORMATION
  Report Type: 
  Country: None (occurrence: None)
  Receive Date: 20040927
  Receipt Date: 20040507
  Transmission Date: 20050211
  Serious: No
  Sender: FDA-Public Use
  Company Number: US076334

PATIENT

DRUGS (1)
  1. NEULASTA [Suspect]

REACTIONS (1)
  - SERUM SICKNESS [None]
